FAERS Safety Report 7885529-6 (Version None)
Quarter: 2011Q4

REPORT INFORMATION
  Report Type: 
  Country: None (occurrence: None)
  Receive Date: 20111102
  Receipt Date: 20110624
  Transmission Date: 20120403
  Serious: No
  Sender: FDA-Public Use
  Company Number: US-AMGEN-USASP2011027682

PATIENT
  Age: 45 Year
  Sex: Female

DRUGS (1)
  1. ENBREL [Suspect]
     Indication: RHEUMATOID ARTHRITIS
     Dosage: 50 MG, QWK
     Dates: start: 20090507

REACTIONS (5)
  - UPPER RESPIRATORY TRACT INFECTION [None]
  - NASAL CONGESTION [None]
  - COUGH [None]
  - RESPIRATORY TRACT CONGESTION [None]
  - OROPHARYNGEAL PAIN [None]
